FAERS Safety Report 6431111-7 (Version None)
Quarter: 2009Q4

REPORT INFORMATION
  Report Type: 
  Country: None (occurrence: None)
  Receive Date: 20091104
  Receipt Date: 20091019
  Transmission Date: 20100525
  Serious: Yes (Hospitalization)
  Sender: FDA-Public Use
  Company Number: 000439

PATIENT
  Age: 74 Year
  Sex: Male
  Weight: 69.2 kg

DRUGS (6)
  1. PLETAL [Suspect]
     Indication: CEREBRAL INFARCTION
     Dosage: 81 MG, QD, ORAL
     Route: 048
     Dates: start: 20060630, end: 20080403
  2. MARZULENE-S (SODIUM AZULENE SULFONATE/L-GLUTAMINE) GRANULE, 0.5 G; REG [Suspect]
     Indication: GASTRITIS PROPHYLAXIS
     Dosage: 0.5 G, TID; ORAL
     Route: 048
     Dates: start: 20060220
  3. JUVELA (TOCOPHEROL ACETATE) GRANULE, 20%; REGIMEN #1 [Suspect]
     Indication: CEREBRAL INFARCTION
     Dosage: 1 G, TID; ORAL
     Route: 048
     Dates: start: 20060220
  4. OLMESARTAN MEDOXOMIL [Suspect]
     Indication: HYPERTENSION
     Dosage: 20 MG, QD; ORAL
     Route: 048
     Dates: start: 20060329
  5. CALBLOCK (AZELNIDIPINE) TABLET, 16 MG; REGIMEN #1 [Suspect]
     Indication: HYPERTENSION
     Dosage: 16 MG, QD; ORAL
     Route: 048
     Dates: start: 20060407
  6. MS ONSHIPPU (CATAPLASMATA) TAPE (INCLUDING POULTICE) [Concomitant]

REACTIONS (1)
  - LARGE INTESTINE CARCINOMA [None]
